FAERS Safety Report 9065235 (Version 1)
Quarter: 2013Q1

REPORT INFORMATION
  Report Type: Spontaneous
  Country: CN (occurrence: CN)
  Receive Date: 20130130
  Receipt Date: 20130130
  Transmission Date: 20140127
  Serious: Yes (Other)
  Sender: FDA-Public Use
  Company Number: CN-ABBOTT-13P-035-1042934-00

PATIENT
  Age: 85 Year
  Sex: Female

DRUGS (5)
  1. DEPAKINE CHRONO [Suspect]
     Indication: EPILEPSY
     Dosage: 500 MILLIGRAM(S); TABLET, EXTENDED RELEASE; ORAL; TWICE A DAY
     Route: 048
     Dates: start: 201301
  2. DEPAKINE CHRONO [Suspect]
     Dosage: 500 MILLIGRAM(S); TABLET; ORAL; TWICE A DAY
     Route: 048
     Dates: start: 201204
  3. HERBAL PREPARATION [Concomitant]
     Indication: PRODUCT USED FOR UNKNOWN INDICATION
  4. HERBAL PREPARATION [Concomitant]
     Indication: PRODUCT USED FOR UNKNOWN INDICATION
  5. HERBAL PREPARATION [Concomitant]
     Indication: PRODUCT USED FOR UNKNOWN INDICATION

REACTIONS (5)
  - Depressed level of consciousness [Unknown]
  - Bruxism [Unknown]
  - Epilepsy [Recovered/Resolved]
  - Confusional state [Unknown]
  - Product counterfeit [Unknown]
